FAERS Safety Report 8546815-X (Version None)
Quarter: 2012Q3

REPORT INFORMATION
  Report Type: 
  Country: None (occurrence: None)
  Receive Date: 20120727
  Receipt Date: 20120203
  Transmission Date: 20120928
  Serious: No
  Sender: FDA-Public Use
  Company Number: US-ASTRAZENECA-2012SE07910

PATIENT
  Age: 28 Year
  Sex: Male

DRUGS (2)
  1. SEROQUEL [Suspect]
     Route: 048
  2. TRILAFON [Suspect]
     Route: 065

REACTIONS (9)
  - MUSCLE TIGHTNESS [None]
  - TONGUE PARALYSIS [None]
  - APHAGIA [None]
  - GENERAL PHYSICAL HEALTH DETERIORATION [None]
  - ACTIVITIES OF DAILY LIVING IMPAIRED [None]
  - INSOMNIA [None]
  - IRRITABILITY [None]
  - DRUG DOSE OMISSION [None]
  - SOMNOLENCE [None]
